FAERS Safety Report 13084554 (Version 1)
Quarter: 2017Q1

REPORT INFORMATION
  Report Type: Spontaneous
  Country: DE (occurrence: DE)
  Receive Date: 20170104
  Receipt Date: 20170104
  Transmission Date: 20170428
  Serious: Yes (Life-Threatening, Hospitalization)
  Sender: FDA-Public Use
  Company Number: DE-TEVA-723624GER

PATIENT
  Age: 54 Year
  Sex: Male
  Weight: 97 kg

DRUGS (5)
  1. GASTROZEPIN [Concomitant]
     Active Substance: PIRENZEPINE HYDROCHLORIDE
     Indication: SALIVARY HYPERSECRETION
     Route: 048
     Dates: start: 20160920, end: 20161014
  2. BIPERIDEN RET. [Concomitant]
     Indication: MUSCLE RIGIDITY
     Route: 048
     Dates: start: 20160916, end: 20161014
  3. METFORMIN [Concomitant]
     Active Substance: METFORMIN HYDROCHLORIDE
     Indication: TYPE 2 DIABETES MELLITUS
     Route: 048
     Dates: start: 20160819
  4. RAMIPRIL. [Concomitant]
     Active Substance: RAMIPRIL
     Indication: HYPERTENSION
     Route: 048
     Dates: start: 20160819
  5. CLOZAPIN [Suspect]
     Active Substance: CLOZAPINE
     Indication: SCHIZOPHRENIA
     Route: 048
     Dates: start: 20160915, end: 20161022

REACTIONS (7)
  - Cough [Recovered/Resolved]
  - Fatigue [Recovered/Resolved]
  - Myocarditis [Recovered/Resolved]
  - Influenza like illness [Recovered/Resolved]
  - Leukocytosis [Recovered/Resolved]
  - Tachycardia [Recovered/Resolved]
  - Pyrexia [Recovered/Resolved]

NARRATIVE: CASE EVENT DATE: 20160930
